FAERS Safety Report 7422614-7 (Version None)
Quarter: 2011Q2

REPORT INFORMATION
  Report Type: 
  Country: None (occurrence: None)
  Receive Date: 20110419
  Receipt Date: 20110411
  Transmission Date: 20111010
  Serious: Yes (Hospitalization)
  Sender: FDA-Public Use
  Company Number: US-ELI_LILLY_AND_COMPANY-US201102005428

PATIENT
  Sex: Female

DRUGS (12)
  1. WELCHOL [Concomitant]
     Indication: HYPERLIPIDAEMIA
     Dosage: 1875 MG, BID
     Route: 048
  2. AMARYL [Concomitant]
     Dosage: 2 MG, BID
     Route: 048
     Dates: end: 20100517
  3. ACTOS [Concomitant]
     Dosage: 30 MG, QD
     Route: 048
     Dates: start: 20100517
  4. AVALIDE [Concomitant]
     Indication: HYPERTENSION
     Dosage: UNK, QD
     Route: 048
     Dates: start: 20100215
  5. LIPITOR [Concomitant]
     Indication: HYPERLIPIDAEMIA
     Dosage: 40 MG, QD
     Route: 048
  6. BYETTA [Suspect]
     Indication: TYPE 2 DIABETES MELLITUS
     Dosage: 5 UG, BID
     Route: 058
     Dates: start: 20090101
  7. BYETTA [Suspect]
     Dosage: 10 UG, BID
     Route: 058
     Dates: end: 20100517
  8. NIASPAN [Concomitant]
     Indication: HYPERLIPIDAEMIA
     Dosage: 100 MG, QD
     Route: 048
  9. WELCHOL [Concomitant]
     Dosage: 3.75 G, EACH MORNING
     Route: 048
     Dates: start: 20100202
  10. ACTOS [Concomitant]
     Dosage: 45 MG, QD
     Route: 048
     Dates: end: 20100517
  11. NITRO-DUR [Concomitant]
     Dosage: 0.4 MG, UNK
     Route: 062
     Dates: start: 20100215
  12. VITAMIN D2 [Concomitant]
     Indication: VITAMIN D DEFICIENCY
     Dosage: 50000 U, WEEKLY (1/W)

REACTIONS (3)
  - MYOCARDIAL INFARCTION [None]
  - WEIGHT DECREASED [None]
  - RENAL FAILURE [None]
